FAERS Safety Report 18499930 (Version 4)
Quarter: 2022Q2

REPORT INFORMATION
  Report Type: Report from Study
  Country: US (occurrence: None)
  Receive Date: 20201113
  Receipt Date: 20220616
  Transmission Date: 20220721
  Serious: Yes (Hospitalization, Other)
  Sender: FDA-Public Use
  Company Number: US-MERCK HEALTHCARE KGAA-9190242

PATIENT
  Age: 46 Year
  Sex: Female

DRUGS (1)
  1. REBIF [Suspect]
     Active Substance: INTERFERON BETA-1A
     Indication: Multiple sclerosis
     Dosage: PREVIOUSLY REBIJECT II MANUAL?REBIF PREFILLED SYRINGE?FOR BATCH NO: AU029572 EXPIRY DATE /JAN/2022
     Route: 058
     Dates: start: 20070105

REACTIONS (5)
  - Gallbladder disorder [Unknown]
  - Weight increased [Unknown]
  - Abdominal hernia [Recovered/Resolved]
  - Dumping syndrome [Unknown]
  - Nausea [Not Recovered/Not Resolved]

NARRATIVE: CASE EVENT DATE: 20210101
